FAERS Safety Report 5850327-1 (Version None)
Quarter: 2008Q3

REPORT INFORMATION
  Report Type: 
  Country: None (occurrence: None)
  Receive Date: 20080731
  Receipt Date: 20080411
  Transmission Date: 20090109
  Serious: No
  Sender: FDA-Public Use
  Company Number: US200804001907

PATIENT
  Age: 58 Year
  Sex: Female
  Weight: 78.5 kg

DRUGS (9)
  1. BYETTA [Suspect]
     Indication: TYPE 2 DIABETES MELLITUS
     Dosage: 5 UG, 2/D, SUBCUTANEOUS
     Route: 058
     Dates: start: 20080404
  2. EXENATIDE PEN, DISPOSABLE DEVICE (EXENATIDE PEN) PEN,DISPOSABLE [Concomitant]
  3. MICRONASE [Concomitant]
  4. METFORMIN HCL [Concomitant]
  5. ANTIHYPERTENSIVES [Concomitant]
  6. LIPITOR [Concomitant]
  7. LISINOPRIL [Concomitant]
  8. CORTISONE (CORTISONE) [Concomitant]
  9. GLYBURIDE [Concomitant]

REACTIONS (4)
  - DYSPEPSIA [None]
  - MALAISE [None]
  - SINUSITIS [None]
  - WEIGHT DECREASED [None]
